FAERS Safety Report 21227684 (Version 1)
Quarter: 2022Q3

REPORT INFORMATION
  Report Type: Spontaneous
  Country: NZ (occurrence: NZ)
  Receive Date: 20220818
  Receipt Date: 20220818
  Transmission Date: 20221026
  Serious: Yes (Hospitalization, Other)
  Sender: FDA-Public Use
  Company Number: AU-JNJFOC-20220808043

PATIENT
  Age: 34 Year
  Sex: Male

DRUGS (5)
  1. INVEGA SUSTENNA [Suspect]
     Active Substance: PALIPERIDONE PALMITATE
     Indication: Product used for unknown indication
     Route: 030
     Dates: start: 2019
  2. INVEGA SUSTENNA [Suspect]
     Active Substance: PALIPERIDONE PALMITATE
     Route: 030
  3. INVEGA SUSTENNA [Suspect]
     Active Substance: PALIPERIDONE PALMITATE
  4. RISPERDAL [Suspect]
     Active Substance: RISPERIDONE
     Indication: Product used for unknown indication
     Route: 048
  5. BENZTROPINE [Concomitant]
     Active Substance: BENZTROPINE

REACTIONS (15)
  - Drug abuse [Not Recovered/Not Resolved]
  - Hospitalisation [Unknown]
  - Emotional disorder [Unknown]
  - Loss of libido [Unknown]
  - Hypopnoea [Unknown]
  - Myalgia [Unknown]
  - Muscle tightness [Unknown]
  - Headache [Unknown]
  - Dizziness [Unknown]
  - Disturbance in attention [Unknown]
  - Burning sensation [Unknown]
  - Paranoia [Unknown]
  - Aggression [Unknown]
  - Product dose omission issue [Unknown]
  - Condition aggravated [Unknown]
